FAERS Safety Report 20296459 (Version 2)
Quarter: 2022Q1

REPORT INFORMATION
  Report Type: Spontaneous
  Country: CN (occurrence: CN)
  Receive Date: 20220105
  Receipt Date: 20220124
  Transmission Date: 20220423
  Serious: Yes (Other)
  Sender: FDA-Public Use
  Company Number: CN-NOVOPROD-871482

PATIENT
  Age: 62 Year
  Sex: Male
  Weight: 50 kg

DRUGS (1)
  1. INSULIN ASPART [Suspect]
     Active Substance: INSULIN ASPART
     Indication: Type 2 diabetes mellitus
     Dosage: 18 IU, BID
     Route: 058
     Dates: start: 20211116, end: 20211118

REACTIONS (7)
  - Coma [Recovered/Resolved]
  - Cerebral infarction [Unknown]
  - Metabolic encephalopathy [Unknown]
  - Blood glucose increased [Unknown]
  - Hypertension [Unknown]
  - Product impurity [Unknown]
  - Product leakage [Unknown]

NARRATIVE: CASE EVENT DATE: 20211118
